FAERS Safety Report 10472064 (Version 1)
Quarter: 2014Q3

REPORT INFORMATION
  Report Type: Spontaneous
  Country: FR (occurrence: FR)
  Receive Date: 20140924
  Receipt Date: 20140924
  Transmission Date: 20150326
  Serious: Yes (Hospitalization)
  Sender: FDA-Public Use
  Company Number: FR-JNJFOC-20140911868

PATIENT
  Age: 77 Year
  Sex: Male

DRUGS (15)
  1. COUMADINE [Interacting]
     Active Substance: WARFARIN SODIUM
     Indication: ATRIAL FIBRILLATION
     Dosage: 6MG PER DAY ,6 DAY/ 7 DAY AND 7MG: 1 DAY /7 DAY
     Route: 048
     Dates: start: 20120120, end: 20140820
  2. AERIUS [Concomitant]
     Active Substance: DESLORATADINE
     Dosage: 100/6 UG/DOSE (INHALATION SOLUTION)= 1 FORM DOSE 2 TIMES PER DAY
     Route: 048
  3. AMOXICILLINE [Concomitant]
     Active Substance: AMOXICILLIN
     Indication: EAR INFECTION
     Dosage: 100/6 UG/DOSE (INHALATION SOLUTION)= 1 FORM DOSE 2 TIMES PER DAY
     Route: 048
     Dates: end: 20140820
  4. INNOVAIR [Concomitant]
     Active Substance: BECLOMETHASONE DIPROPIONATE\FORMOTEROL
     Dosage: 100/6 UG/DOSE (INHALATION SOLUTION)= 1 FORM DOSE 2 TIMES PER DAY
     Route: 055
  5. DEBRIDAT [Concomitant]
     Active Substance: TRIMEBUTINE MALEATE
     Indication: ABDOMINAL DISTENSION
     Dosage: 100/6 UG/DOSE (INHALATION SOLUTION)= 1 FORM DOSE 2 TIMES PER DAY
     Route: 048
  6. AMOXICILLINE [Concomitant]
     Active Substance: AMOXICILLIN
     Indication: PHARYNGITIS
     Dosage: 100/6 UG/DOSE (INHALATION SOLUTION)= 1 FORM DOSE 2 TIMES PER DAY
     Route: 048
     Dates: end: 20140820
  7. METFORMINE [Concomitant]
     Active Substance: METFORMIN HYDROCHLORIDE
     Indication: TYPE 2 DIABETES MELLITUS
     Route: 048
  8. IPERTEN [Concomitant]
     Active Substance: MANIDIPINE
     Route: 048
  9. DAKTARIN 2% [Suspect]
     Active Substance: MICONAZOLE NITRATE
     Route: 002
  10. MOPRAL [Concomitant]
     Active Substance: OMEPRAZOLE SODIUM
     Route: 048
  11. COUMADINE [Interacting]
     Active Substance: WARFARIN SODIUM
     Indication: ATRIAL FIBRILLATION
     Route: 048
     Dates: start: 20140821
  12. DAKTARIN 2% [Suspect]
     Active Substance: MICONAZOLE NITRATE
     Indication: FUNGAL INFECTION
     Route: 002
     Dates: start: 20140805, end: 20140820
  13. PARACETAMOL [Concomitant]
     Active Substance: ACETAMINOPHEN
     Dosage: 100/6 UG/DOSE (INHALATION SOLUTION)= 1 FORM DOSE 2 TIMES PER DAY
     Route: 048
  14. AMOXICILLINE [Concomitant]
     Active Substance: AMOXICILLIN
     Indication: RHINITIS
     Dosage: 100/6 UG/DOSE (INHALATION SOLUTION)= 1 FORM DOSE 2 TIMES PER DAY
     Route: 048
     Dates: end: 20140820
  15. BROMAZEPAM [Concomitant]
     Active Substance: BROMAZEPAM
     Indication: INSOMNIA
     Dosage: 100/6 UG/DOSE (INHALATION SOLUTION)= 1 FORM DOSE 2 TIMES PER DAY
     Route: 048
     Dates: end: 20140825

REACTIONS (10)
  - Gastrointestinal haemorrhage [Recovered/Resolved]
  - Pleural effusion [None]
  - Pyelonephritis [None]
  - Drug interaction [Recovered/Resolved]
  - Melaena [Recovered/Resolved]
  - Atrial fibrillation [None]
  - Fatigue [None]
  - Cardiomegaly [None]
  - Overdose [Recovered/Resolved]
  - Anaemia [Recovered/Resolved]

NARRATIVE: CASE EVENT DATE: 20140820
